FAERS Safety Report 15353982 (Version 1)
Quarter: 2018Q3

REPORT INFORMATION
  Report Type: Spontaneous
  Country: US (occurrence: US)
  Receive Date: 20180905
  Receipt Date: 20180905
  Transmission Date: 20181010
  Serious: No
  Sender: FDA-Public Use
  Company Number: US-CELGENEUS-USA-20180810005

PATIENT
  Age: 60 Year
  Sex: Male
  Weight: 98 kg

DRUGS (3)
  1. OTEZLA [Suspect]
     Active Substance: APREMILAST
     Indication: PSORIASIS
     Dosage: TITRATION SCHEDULE
     Route: 048
     Dates: start: 20180817
  2. OTEZLA [Suspect]
     Active Substance: APREMILAST
     Dosage: TITRATION SCHEDULE
     Route: 048
     Dates: start: 201808, end: 20180821
  3. CLOBETASOL [Concomitant]
     Active Substance: CLOBETASOL
     Indication: PRODUCT USED FOR UNKNOWN INDICATION
     Route: 061

REACTIONS (1)
  - Psoriasis [Unknown]

NARRATIVE: CASE EVENT DATE: 20180821
